FAERS Safety Report 15559526 (Version 2)
Quarter: 2018Q4

REPORT INFORMATION
  Report Type: Spontaneous
  Country: CA (occurrence: CA)
  Receive Date: 20181029
  Receipt Date: 20181030
  Transmission Date: 20190205
  Serious: Yes (Life-Threatening, Other)
  Sender: FDA-Public Use
  Company Number: CA-ROCHE-2202505

PATIENT
  Age: 45 Year
  Sex: Female

DRUGS (32)
  1. CELLCEPT [Suspect]
     Active Substance: MYCOPHENOLATE MOFETIL\MYCOPHENOLATE MOFETIL HYDROCHLORIDE
     Indication: TRANSPLANT
     Route: 048
  2. ENBREL [Suspect]
     Active Substance: ETANERCEPT
     Route: 065
  3. ENBREL [Suspect]
     Active Substance: ETANERCEPT
     Route: 058
  4. TACROLIMUS. [Suspect]
     Active Substance: TACROLIMUS
     Indication: PRODUCT USED FOR UNKNOWN INDICATION
     Route: 048
  5. CELLCEPT [Suspect]
     Active Substance: MYCOPHENOLATE MOFETIL\MYCOPHENOLATE MOFETIL HYDROCHLORIDE
     Route: 048
  6. ENBREL [Suspect]
     Active Substance: ETANERCEPT
     Route: 058
  7. TACROLIMUS. [Suspect]
     Active Substance: TACROLIMUS
     Route: 048
  8. SULFASALAZINE. [Suspect]
     Active Substance: SULFASALAZINE
     Indication: RHEUMATOID ARTHRITIS
     Route: 065
  9. ANTILYMPHOCYTE GLOBULIN [Suspect]
     Active Substance: THYMOCYTE IMMUNE GLOBULIN NOS
     Indication: PRODUCT USED FOR UNKNOWN INDICATION
     Route: 065
  10. ANTITHYMOCYTE IMMUNOGLOBULIN [Suspect]
     Active Substance: THYMOCYTE IMMUNE GLOBULIN NOS
     Indication: TRANSPLANT
     Route: 065
  11. ENBREL [Suspect]
     Active Substance: ETANERCEPT
     Route: 058
  12. ENBREL [Suspect]
     Active Substance: ETANERCEPT
     Route: 048
  13. ENBREL [Suspect]
     Active Substance: ETANERCEPT
     Route: 058
  14. REMICADE [Suspect]
     Active Substance: INFLIXIMAB
     Indication: PRODUCT USED FOR UNKNOWN INDICATION
     Route: 042
  15. ANTILYMPHOCYTE GLOBULIN [Suspect]
     Active Substance: THYMOCYTE IMMUNE GLOBULIN NOS
     Route: 065
  16. ENBREL [Suspect]
     Active Substance: ETANERCEPT
     Indication: PRODUCT USED FOR UNKNOWN INDICATION
     Route: 048
  17. ENBREL [Suspect]
     Active Substance: ETANERCEPT
     Route: 058
  18. ENBREL [Suspect]
     Active Substance: ETANERCEPT
     Route: 058
  19. TACROLIMUS. [Suspect]
     Active Substance: TACROLIMUS
     Route: 048
  20. RAPAMUNE [Suspect]
     Active Substance: SIROLIMUS
     Indication: TRANSPLANT
     Route: 065
  21. DACLIZUMAB [Suspect]
     Active Substance: DACLIZUMAB
     Indication: TRANSPLANT
     Route: 042
  22. CELLCEPT [Suspect]
     Active Substance: MYCOPHENOLATE MOFETIL\MYCOPHENOLATE MOFETIL HYDROCHLORIDE
     Route: 048
  23. ZENAPAX [Suspect]
     Active Substance: DACLIZUMAB
     Indication: PRODUCT USED FOR UNKNOWN INDICATION
     Route: 042
  24. NEORAL [Suspect]
     Active Substance: CYCLOSPORINE
     Indication: TRANSPLANT
     Route: 065
  25. ZINBRYTA [Suspect]
     Active Substance: DACLIZUMAB
     Indication: PRODUCT USED FOR UNKNOWN INDICATION
     Route: 042
  26. TACROLIMUS. [Suspect]
     Active Substance: TACROLIMUS
     Indication: TRANSPLANT
     Route: 048
  27. ENBREL [Suspect]
     Active Substance: ETANERCEPT
     Route: 058
  28. ENBREL [Suspect]
     Active Substance: ETANERCEPT
     Route: 058
  29. TACROLIMUS. [Suspect]
     Active Substance: TACROLIMUS
     Route: 048
  30. ANTILYMPHOCYTE GLOBULIN [Suspect]
     Active Substance: THYMOCYTE IMMUNE GLOBULIN NOS
     Route: 065
  31. ANTILYMPHOCYTE GLOBULIN [Suspect]
     Active Substance: THYMOCYTE IMMUNE GLOBULIN NOS
     Route: 065
  32. ANTITHYMOCYTE IMMUNOGLOBULIN (RABBIT) [Suspect]
     Active Substance: LAPINE T-LYMPHOCYTE IMMUNE GLOBULIN
     Indication: TRANSPLANT
     Route: 065

REACTIONS (16)
  - Pain [Not Recovered/Not Resolved]
  - Sleep disorder due to general medical condition, insomnia type [Not Recovered/Not Resolved]
  - Drug ineffective [Unknown]
  - Loss of personal independence in daily activities [Not Recovered/Not Resolved]
  - Transplant dysfunction [Not Recovered/Not Resolved]
  - Alopecia [Not Recovered/Not Resolved]
  - Liver function test abnormal [Not Recovered/Not Resolved]
  - Transplant rejection [Not Recovered/Not Resolved]
  - Product use issue [Unknown]
  - Condition aggravated [Not Recovered/Not Resolved]
  - Rheumatoid arthritis [Not Recovered/Not Resolved]
  - Acne [Not Recovered/Not Resolved]
  - Ovarian cyst [Not Recovered/Not Resolved]
  - Pneumonia [Unknown]
  - Overdose [Unknown]
  - Incorrect route of product administration [Unknown]
